FAERS Safety Report 4371231-4 (Version None)
Quarter: 2004Q2

REPORT INFORMATION
  Report Type: 
  Country: None (occurrence: None)
  Receive Date: 20040604
  Receipt Date: 20020118
  Transmission Date: 20050107
  Serious: Yes (Hospitalization)
  Sender: FDA-Public Use
  Company Number: PHBS2002JP01028

PATIENT
  Age: 64 Year
  Sex: Male
  Weight: 55 kg

DRUGS (9)
  1. GLEEVEC [Suspect]
     Dosage: 300 MG/DAY
     Route: 048
  2. GLEEVEC [Suspect]
     Dosage: 400 MG/DAY
     Route: 048
     Dates: start: 20020104, end: 20020113
  3. GLEEVEC [Suspect]
     Dosage: UP TO 4 CAPSULES/DAY
     Route: 048
     Dates: start: 20020129, end: 20020218
  4. GLEEVEC [Suspect]
     Dosage: 2 CAPSULES/DAY
     Route: 048
  5. ZESTRIL [Concomitant]
     Dates: start: 19990816, end: 20020116
  6. CARNACULIN [Concomitant]
     Dates: start: 19990816, end: 20020116
  7. DEPAS [Concomitant]
     Dates: start: 19990920
  8. MAGNESIUM OXIDE [Concomitant]
     Dates: start: 20010917
  9. PURSENNID [Concomitant]
     Dates: start: 20020104

REACTIONS (5)
  - ERYTHEMA MULTIFORME [None]
  - NAUSEA [None]
  - PRURITUS GENERALISED [None]
  - PYREXIA [None]
  - RASH [None]
